FAERS Safety Report 8209323-1 (Version None)
Quarter: 2012Q1

REPORT INFORMATION
  Report Type: 
  Country: None (occurrence: None)
  Receive Date: 20120314
  Receipt Date: 20120305
  Transmission Date: 20120608
  Serious: Yes (Hospitalization)
  Sender: FDA-Public Use
  Company Number: US-BAYER-2011-083580

PATIENT
  Age: 26 Year
  Sex: Female
  Weight: 59 kg

DRUGS (18)
  1. DROSPIRENONE AND ETHINYL ESTRADIOL [Suspect]
     Indication: MENSTRUAL CYCLE MANAGEMENT
  2. PREVACID [Concomitant]
     Indication: GASTROOESOPHAGEAL REFLUX DISEASE
  3. SINGULAIR [Concomitant]
     Indication: MULTIPLE ALLERGIES
  4. YASMIN [Suspect]
     Indication: CONTRACEPTION
     Dosage: UNK
     Dates: start: 20060801, end: 20070601
  5. YASMIN [Suspect]
     Indication: MENSTRUAL CYCLE MANAGEMENT
     Dosage: UNK
     Dates: start: 20071001, end: 20080601
  6. BUPROPION HCL [Concomitant]
     Indication: DEPRESSION
     Dosage: UNK
     Dates: start: 20091104, end: 20091124
  7. PULMICORT [Concomitant]
     Indication: PNEUMONIA
     Dosage: UNK
     Dates: start: 20091102, end: 20091124
  8. DROSPIRENONE AND ETHINYL ESTRADIOL [Suspect]
     Indication: CONTRACEPTION
     Dosage: UNK
     Dates: start: 20080801, end: 20091201
  9. AMBIEN [Concomitant]
     Indication: INSOMNIA
     Dosage: UNK
     Dates: start: 20091104, end: 20091124
  10. YAZ [Suspect]
     Indication: CONTRACEPTION
     Dosage: UNK
     Dates: start: 20070701, end: 20070901
  11. SINGULAIR [Concomitant]
     Indication: ASTHMA
     Dosage: UNK
     Dates: start: 20091104, end: 20091124
  12. CLARINEX [Concomitant]
     Indication: MULTIPLE ALLERGIES
     Dosage: UNK
     Dates: start: 20091104, end: 20091124
  13. ALBUTEROL SULFATE [Concomitant]
     Indication: ASTHMA
     Dosage: UNK
     Dates: start: 20091102, end: 20091124
  14. YAZ [Suspect]
     Indication: MENSTRUAL CYCLE MANAGEMENT
  15. TYNELOL [Concomitant]
     Indication: PAIN MANAGEMENT
     Dosage: UNK
     Dates: start: 20091120
  16. PREVACID [Concomitant]
     Indication: IRRITABLE BOWEL SYNDROME
     Dosage: UNK
     Dates: start: 20091103, end: 20091124
  17. ALBUTEROL [Concomitant]
     Indication: ASTHMA
     Dosage: UNK
     Dates: start: 20091107, end: 20091124
  18. AZITHROMYCIN [Concomitant]
     Indication: PNEUMONIA
     Dosage: UNK
     Dates: start: 20091107, end: 20091114

REACTIONS (4)
  - PAIN [None]
  - CHOLELITHIASIS [None]
  - CHOLECYSTITIS CHRONIC [None]
  - BILE DUCT STONE [None]
